FAERS Safety Report 9492504 (Version 3)
Quarter: 2013Q3

REPORT INFORMATION
  Report Type: Spontaneous
  Country: US (occurrence: US)
  Receive Date: 20130830
  Receipt Date: 20130920
  Transmission Date: 20140515
  Serious: No
  Sender: FDA-Public Use
  Company Number: US-PFIZER INC-2013250005

PATIENT
  Age: 55 Year
  Sex: Female
  Weight: 82.99 kg

DRUGS (5)
  1. LYRICA [Suspect]
     Indication: FIBROMYALGIA
     Dosage: ONE OR TWO CAPSULES OF 50 MG, 3X/DAY
     Route: 048
     Dates: start: 2010
  2. LYRICA [Suspect]
     Dosage: 50 MG, EVERY FOUR HOURS
     Route: 048
  3. LYRICA [Suspect]
     Dosage: 50 MG, 2X/DAY
     Route: 048
  4. ZOLPIDEM TARTRATE [Suspect]
     Indication: INSOMNIA
     Dosage: 10 MG, 1X/DAY AT BED TIME
  5. LISINOPRIL W/HYDROCHLOROTHIAZIDE [Concomitant]
     Indication: HYPERTENSION
     Dosage: LISINOPRIL (50) MG /HYDROCHLOROTHIAZIDE (12.5) MG, 1X/DAY

REACTIONS (10)
  - Insomnia [Unknown]
  - Dry mouth [Unknown]
  - Pain [Unknown]
  - Gait disturbance [Unknown]
  - Musculoskeletal pain [Unknown]
  - Neck pain [Unknown]
  - Arthralgia [Unknown]
  - Muscle disorder [Unknown]
  - Stress [Unknown]
  - Intentional drug misuse [Unknown]
